FAERS Safety Report 5272766-2 (Version None)
Quarter: 2007Q1

REPORT INFORMATION
  Report Type: 
  Country: None (occurrence: None)
  Receive Date: 20070322
  Receipt Date: 20070316
  Transmission Date: 20070707
  Serious: Yes (Hospitalization)
  Sender: FDA-Public Use
  Company Number: JP-JPN-A200700747

PATIENT
  Age: 38 Year
  Sex: Female
  Weight: 80 kg

DRUGS (20)
  1. PAXIL [Suspect]
     Indication: DEPRESSION
     Route: 048
     Dates: start: 20030301
  2. DEPAS [Concomitant]
     Route: 048
  3. SILECE [Concomitant]
     Route: 048
     Dates: start: 20061001
  4. MAGNESIUM OXIDE [Concomitant]
     Route: 048
  5. NITRAZEPAM [Concomitant]
     Route: 048
  6. UNKNOWN DRUG [Concomitant]
  7. VASOLAN [Concomitant]
  8. LIPITOR [Concomitant]
     Route: 048
  9. UBRETID [Concomitant]
     Dates: start: 20061001
  10. LEVOTOMIN [Concomitant]
     Dates: start: 20061001
  11. UNKNOWN DRUG [Concomitant]
     Dates: start: 20061201
  12. CHINESE MEDICINE [Concomitant]
     Route: 048
     Dates: start: 20061201
  13. NICOTINELL [Concomitant]
     Route: 062
     Dates: start: 20061201
  14. CLARITIN [Concomitant]
     Dates: start: 20061201
  15. UNKNOWN DRUG [Concomitant]
     Dates: start: 20061215, end: 20061229
  16. BISOLVON [Concomitant]
     Dates: start: 20061215, end: 20061229
  17. TRANSAMIN [Concomitant]
     Route: 048
     Dates: start: 20061227
  18. DASEN [Concomitant]
     Route: 048
     Dates: start: 20061227
  19. CHINESE MEDICINE [Concomitant]
     Route: 048
     Dates: start: 20061227
  20. INTEBAN [Concomitant]
     Route: 062
     Dates: start: 20061227

REACTIONS (11)
  - CHEST X-RAY ABNORMAL [None]
  - COUGH [None]
  - DYSPNOEA [None]
  - FIBRIN D DIMER INCREASED [None]
  - HYPOXIA [None]
  - PLEURAL EFFUSION [None]
  - PNEUMONIA [None]
  - PULMONARY EMBOLISM [None]
  - PULMONARY INFARCTION [None]
  - PYREXIA [None]
  - RASH GENERALISED [None]
